FAERS Safety Report 8516112-7 (Version None)
Quarter: 2012Q3

REPORT INFORMATION
  Report Type: 
  Country: None (occurrence: None)
  Receive Date: 20120717
  Receipt Date: 20120615
  Transmission Date: 20120928
  Serious: No
  Sender: FDA-Public Use
  Company Number: US-NOVEN-12US004805

PATIENT
  Sex: Female

DRUGS (2)
  1. FENTANYL [Suspect]
     Indication: PAIN
     Dosage: 25 UG/HR Q 72HRS
     Route: 062
     Dates: start: 20120614, end: 20120615
  2. MULTI-VITAMINS [Concomitant]
     Route: 048

REACTIONS (4)
  - INADEQUATE ANALGESIA [None]
  - DIZZINESS [None]
  - VOMITING [None]
  - PRURITUS GENERALISED [None]
